FAERS Safety Report 5911336-7 (Version None)
Quarter: 2008Q4

REPORT INFORMATION
  Report Type: 
  Country: None (occurrence: None)
  Receive Date: 20081007
  Receipt Date: 20080924
  Transmission Date: 20090506
  Serious: Yes (Hospitalization)
  Sender: FDA-Public Use
  Company Number: FR-ELI_LILLY_AND_COMPANY-FR200809005252

PATIENT
  Sex: Male

DRUGS (6)
  1. ZYPREXA [Suspect]
     Indication: ANXIETY DISORDER
     Dosage: 10 MG, DAILY (1/D)
     Route: 048
     Dates: start: 20011227, end: 20060301
  2. ZYPREXA [Suspect]
     Dosage: 10 MG, 2/D
     Route: 048
     Dates: start: 20060301
  3. ZYPREXA [Suspect]
     Dosage: 10 MG, DAILY (1/D)
     Route: 048
  4. VIRAMUNE [Concomitant]
     Dosage: UNK, UNK
     Dates: start: 20030601
  5. ZIAGEN [Concomitant]
     Dosage: UNK, UNK
     Dates: start: 20030601
  6. VIREAD [Concomitant]
     Dosage: UNK, UNK
     Dates: start: 20030601

REACTIONS (3)
  - BILIARY ISCHAEMIA [None]
  - COLITIS ISCHAEMIC [None]
  - NECROTISING COLITIS [None]
